FAERS Safety Report 25661455 (Version 1)
Quarter: 2025Q3

REPORT INFORMATION
  Report Type: Spontaneous
  Country: US (occurrence: US)
  Receive Date: 20250808
  Receipt Date: 20250808
  Transmission Date: 20251021
  Serious: No
  Sender: AMGEN
  Company Number: US-AMGEN-USASP2025155712

PATIENT
  Sex: Male

DRUGS (1)
  1. TAVNEOS [Suspect]
     Active Substance: AVACOPAN
     Indication: Microscopic polyangiitis
     Dosage: 3 DOSAGE FORM, BID (3 CAPS BID WITH FOOD)
     Route: 048
     Dates: start: 20241226

REACTIONS (1)
  - Drug ineffective [Unknown]
